FAERS Safety Report 6966483-8 (Version None)
Quarter: 2010Q3

REPORT INFORMATION
  Report Type: 
  Country: None (occurrence: None)
  Receive Date: 20100906
  Receipt Date: 20100827
  Transmission Date: 20110219
  Serious: Yes (Hospitalization)
  Sender: FDA-Public Use
  Company Number: US-BIOGENIDEC-2010BI029927

PATIENT
  Age: 54 Year
  Sex: Female

DRUGS (1)
  1. TYSABRI [Suspect]
     Indication: MULTIPLE SCLEROSIS
     Route: 042
     Dates: start: 20100305, end: 20100701

REACTIONS (5)
  - AMNESIA [None]
  - BLOOD GLUCOSE DECREASED [None]
  - DEHYDRATION [None]
  - DIZZINESS [None]
  - HYPOTENSION [None]
